FAERS Safety Report 20839340 (Version 3)
Quarter: 2022Q2

REPORT INFORMATION
  Report Type: Spontaneous
  Country: US (occurrence: US)
  Receive Date: 20220517
  Receipt Date: 20220617
  Transmission Date: 20220721
  Serious: Yes (Other)
  Sender: FDA-Public Use
  Company Number: US-PFIZER INC-202200709125

PATIENT
  Age: 57 Year
  Sex: Female
  Weight: 59.9 kg

DRUGS (1)
  1. IBRANCE [Suspect]
     Active Substance: PALBOCICLIB
     Indication: Endometrial cancer
     Dosage: 100 MG, CYCLIC (ONCE DAILY ON DAYS 1-21 IN A 28 DAY CYCLE)
     Route: 048
     Dates: start: 20220504, end: 20220529

REACTIONS (3)
  - Neutropenia [Unknown]
  - Fatigue [Unknown]
  - Off label use [Unknown]

NARRATIVE: CASE EVENT DATE: 20220101
